FAERS Safety Report 21701904 (Version 8)
Quarter: 2023Q2

REPORT INFORMATION
  Report Type: Report from Study
  Country: US (occurrence: US)
  Receive Date: 20221208
  Receipt Date: 20230420
  Transmission Date: 20230721
  Serious: No
  Sender: FDA-Public Use
  Company Number: US-AGIOS-2212US03198

PATIENT
  Sex: Female

DRUGS (1)
  1. MITAPIVAT [Suspect]
     Active Substance: MITAPIVAT
     Indication: Pyruvate kinase deficiency anaemia
     Dosage: 50 MILLIGRAM
     Dates: start: 20221121

REACTIONS (13)
  - Musculoskeletal disorder [Unknown]
  - Arthritis [Unknown]
  - Constipation [Unknown]
  - Arthralgia [Recovered/Resolved]
  - Sleep disorder [Recovered/Resolved]
  - Rash macular [Unknown]
  - Feeling cold [Unknown]
  - Poor quality sleep [Unknown]
  - Initial insomnia [Unknown]
  - Fall [Unknown]
  - Arthralgia [Unknown]
  - Nocturia [Unknown]
  - Vascular skin disorder [Unknown]
